FAERS Safety Report 8413935-X (Version None)
Quarter: 2012Q2

REPORT INFORMATION
  Report Type: 
  Country: None (occurrence: None)
  Receive Date: 20120323
  Receipt Date: 20110222
  Transmission Date: 20120825
  Serious: Yes (Other)
  Sender: FDA-Public Use
  Company Number: 163-21880-11022858

PATIENT
  Sex: Female

DRUGS (3)
  1. REVLIMID [Suspect]
     Indication: MULTIPLE MYELOMA
     Dosage: 10 MG, 1 IN 1 D, PO 15 MG, DAILY X 21 DAYS, PO 10 MG, EVERY OTHER DAY, PO
     Route: 048
     Dates: start: 20080923
  2. REVLIMID [Suspect]
     Indication: MULTIPLE MYELOMA
     Dosage: 10 MG, 1 IN 1 D, PO 15 MG, DAILY X 21 DAYS, PO 10 MG, EVERY OTHER DAY, PO
     Route: 048
     Dates: start: 20110207
  3. REVLIMID [Suspect]
     Indication: MULTIPLE MYELOMA
     Dosage: 10 MG, 1 IN 1 D, PO 15 MG, DAILY X 21 DAYS, PO 10 MG, EVERY OTHER DAY, PO
     Route: 048
     Dates: start: 20100701

REACTIONS (1)
  - FULL BLOOD COUNT DECREASED [None]
